FAERS Safety Report 10053625 (Version 1)
Quarter: 2014Q2

REPORT INFORMATION
  Report Type: Spontaneous
  Country: US (occurrence: US)
  Receive Date: 20140402
  Receipt Date: 20140402
  Transmission Date: 20141212
  Serious: No
  Sender: FDA-Public Use
  Company Number: US-PFIZER INC-2014092698

PATIENT
  Age: 66 Year
  Sex: Female

DRUGS (6)
  1. LYRICA [Suspect]
     Indication: BACK PAIN
     Dosage: 50 MG, 3X/DAY
  2. LYRICA [Suspect]
     Indication: SPONDYLOLISTHESIS
  3. LYRICA [Suspect]
     Indication: CYSTITIS INTERSTITIAL
  4. MORPHINE [Concomitant]
     Dosage: UNK
  5. KLONOPIN [Concomitant]
     Dosage: UNK
  6. ESTROGEN [Concomitant]
     Dosage: UNK

REACTIONS (3)
  - Joint swelling [Recovered/Resolved]
  - Euphoric mood [Recovered/Resolved]
  - Weight increased [Recovered/Resolved]
